FAERS Safety Report 6622679-6 (Version None)
Quarter: 2010Q1

REPORT INFORMATION
  Report Type: 
  Country: None (occurrence: None)
  Receive Date: 20100310
  Receipt Date: 20100119
  Transmission Date: 20100710
  Serious: No
  Sender: FDA-Public Use
  Company Number: US-BIOGENIDEC-2010BI002103

PATIENT
  Age: 52 Year
  Sex: Female

DRUGS (2)
  1. AVONEX [Suspect]
     Indication: MULTIPLE SCLEROSIS
     Route: 030
     Dates: start: 19970615, end: 20000615
  2. AVONEX [Suspect]
     Route: 030
     Dates: start: 20050503

REACTIONS (4)
  - COORDINATION ABNORMAL [None]
  - OPTIC NEURITIS [None]
  - PYREXIA [None]
  - URINARY TRACT INFECTION [None]
